FAERS Safety Report 4376070-6 (Version None)
Quarter: 2004Q2

REPORT INFORMATION
  Report Type: 
  Country: None (occurrence: None)
  Receive Date: 20040611
  Receipt Date: 20040603
  Transmission Date: 20050107
  Serious: Yes (Hospitalization)
  Sender: FDA-Public Use
  Company Number: DE-BRISTOL-MYERS SQUIBB COMPANY-12604310

PATIENT
  Age: 67 Year
  Sex: Female
  Weight: 75 kg

DRUGS (9)
  1. CISPLATIN [Suspect]
     Indication: NON-SMALL CELL LUNG CANCER
     Route: 042
     Dates: start: 20040518, end: 20040518
  2. VINORELBINE TARTRATE [Suspect]
     Indication: NON-SMALL CELL LUNG CANCER
     Route: 042
     Dates: start: 20040518, end: 20040518
  3. GEMCITABINE [Suspect]
     Indication: NON-SMALL CELL LUNG CANCER
     Route: 042
     Dates: start: 20040518, end: 20040518
  4. ALIZAPRIDE [Concomitant]
  5. ONDANSETRON [Concomitant]
  6. ASPIRIN [Concomitant]
  7. DEXAMETHASONE [Concomitant]
  8. ENALAPRIL [Concomitant]
  9. DOXEPIN HCL [Concomitant]

REACTIONS (2)
  - DEHYDRATION [None]
  - ENTERITIS [None]
